FAERS Safety Report 7321576-0 (Version None)
Quarter: 2011Q1

REPORT INFORMATION
  Report Type: 
  Country: None (occurrence: None)
  Receive Date: 20110228
  Receipt Date: 20100607
  Transmission Date: 20110831
  Serious: No
  Sender: FDA-Public Use
  Company Number: A0863330A

PATIENT
  Age: 34 Year
  Sex: Male

DRUGS (2)
  1. VALTREX [Suspect]
     Dosage: 2G TWICE PER DAY
     Route: 048
     Dates: start: 20100401
  2. VALACYCLOVIR [Suspect]
     Dosage: 2G TWICE PER DAY
     Route: 048
     Dates: start: 20100401

REACTIONS (2)
  - ALOPECIA [None]
  - PHOTOSENSITIVITY REACTION [None]
